FAERS Safety Report 15663452 (Version 2)
Quarter: 2019Q4

REPORT INFORMATION
  Report Type: Spontaneous
  Country: FR (occurrence: FR)
  Receive Date: 20181128
  Receipt Date: 20191223
  Transmission Date: 20200122
  Serious: Yes (Hospitalization)
  Sender: FDA-Public Use
  Company Number: FR-TEVA-2018-FR-979696

PATIENT
  Age: 65 Year
  Sex: Female
  Weight: 40 kg

DRUGS (2)
  1. OFLOXACINE [Suspect]
     Active Substance: OFLOXACIN
     Indication: URINARY TRACT INFECTION
     Dosage: 400 MILLIGRAM DAILY;
     Route: 048
     Dates: start: 20180907, end: 20180911
  2. ALKONATREM 150 MG, G?LULE [Suspect]
     Active Substance: DEMECLOCYCLINE HYDROCHLORIDE
     Indication: INAPPROPRIATE ANTIDIURETIC HORMONE SECRETION
     Dosage: 3 DOSAGE FORMS DAILY;
     Route: 065
     Dates: start: 20180728, end: 20181012

REACTIONS (6)
  - Bronchial obstruction [Recovered/Resolved]
  - Acute kidney injury [Recovered/Resolved]
  - Photosensitivity reaction [Recovered/Resolved]
  - Pseudomonas bronchitis [Recovered/Resolved]
  - Burns second degree [Recovered/Resolved]
  - Vomiting [Recovered/Resolved]

NARRATIVE: CASE EVENT DATE: 201809
